FAERS Safety Report 14601990 (Version 2)
Quarter: 2018Q2

REPORT INFORMATION
  Report Type: Spontaneous
  Country: US (occurrence: US)
  Receive Date: 20180306
  Receipt Date: 20180504
  Transmission Date: 20180711
  Serious: Yes (Life-Threatening, Hospitalization, Other)
  Sender: FDA-Public Use
  Company Number: US-MACLEODS PHARMACEUTICALS US LTD-MAC2018010824

PATIENT

DRUGS (1)
  1. METFORMIN HYDROCHLORIDE. [Suspect]
     Active Substance: METFORMIN HYDROCHLORIDE
     Indication: PRODUCT USED FOR UNKNOWN INDICATION
     Dosage: UNK
     Route: 065

REACTIONS (12)
  - Renal impairment [Unknown]
  - Lactic acidosis [Recovered/Resolved]
  - Metabolic acidosis [Unknown]
  - Abdominal pain [Unknown]
  - Acute kidney injury [Recovered/Resolved]
  - Cardiomyopathy [Recovered/Resolved]
  - Hypoglycaemia [Recovered/Resolved]
  - Intentional overdose [Recovered/Resolved]
  - Vomiting [Unknown]
  - Aggression [Unknown]
  - Toxicity to various agents [Recovered/Resolved]
  - Somnolence [Unknown]
